FAERS Safety Report 8465339-1 (Version None)
Quarter: 2012Q2

REPORT INFORMATION
  Report Type: 
  Country: None (occurrence: None)
  Receive Date: 20120626
  Receipt Date: 20120623
  Transmission Date: 20120825
  Serious: Yes (Death)
  Sender: FDA-Public Use
  Company Number: PHHY2012US054006

PATIENT

DRUGS (4)
  1. MYCOPHENOLATE MOFETIL [Suspect]
     Indication: PROPHYLAXIS AGAINST GRAFT VERSUS HOST DISEASE
     Dosage: UNK UKN, UNK
  2. CYCLOSPORINE [Suspect]
     Indication: PROPHYLAXIS AGAINST GRAFT VERSUS HOST DISEASE
     Dosage: UNK UKN, UNK
  3. CLOFARABINE [Concomitant]
     Dosage: 40 MG/M^2, UNK
     Route: 042
  4. MELPHALAN HYDROCHLORIDE [Concomitant]
     Dosage: 100 MG/M^2, UNK

REACTIONS (3)
  - NEPHROPATHY TOXIC [None]
  - INFECTION [None]
  - HEPATOTOXICITY [None]
